FAERS Safety Report 9729477 (Version 2)
Quarter: 2015Q3

REPORT INFORMATION
  Report Type: Spontaneous
  Country: US (occurrence: US)
  Receive Date: 20131204
  Receipt Date: 20150804
  Transmission Date: 20151125
  Serious: No
  Sender: FDA-Public Use
  Company Number: US-GILEAD-2009-0021588

PATIENT
  Age: 74 Year
  Sex: Female

DRUGS (14)
  1. LOVASTATIN. [Concomitant]
     Active Substance: LOVASTATIN
  2. ASPIRIN. [Concomitant]
     Active Substance: ASPIRIN
  3. REVATIO [Concomitant]
     Active Substance: SILDENAFIL CITRATE
  4. ELLIS TONIC [Concomitant]
     Active Substance: CYANOCOBALAMIN\DEXPANTHENOL\MAGNESIUM SULFATE\MANGANESE SULFATE\NIACINAMIDE\PYRIDOXINE HYDROCHLORIDE\RIBOFLAVIN\THIAMINE HYDROCHLORIDE\ZINC SULFATE
  5. MAGNESIUM [Concomitant]
     Active Substance: MAGNESIUM
  6. TYLENOL [Concomitant]
     Active Substance: ACETAMINOPHEN
  7. OXYGEN. [Concomitant]
     Active Substance: OXYGEN
  8. LEVOXYL [Concomitant]
     Active Substance: LEVOTHYROXINE SODIUM
  9. MULTIVITAMIN [Concomitant]
     Active Substance: VITAMINS
  10. AMOXICILLIN. [Concomitant]
     Active Substance: AMOXICILLIN
  11. FIORICET [Concomitant]
     Active Substance: ACETAMINOPHEN\BUTALBITAL\CAFFEINE
  12. LETAIRIS [Suspect]
     Active Substance: AMBRISENTAN
     Indication: PULMONARY ARTERIAL HYPERTENSION
     Route: 048
  13. CALTRATE [Concomitant]
     Active Substance: CALCIUM CARBONATE
  14. LACTAID [Concomitant]
     Active Substance: LACTASE

REACTIONS (2)
  - Joint swelling [Unknown]
  - Blood pressure decreased [Unknown]
